FAERS Safety Report 12092243 (Version 1)
Quarter: 2016Q1

REPORT INFORMATION
  Report Type: Spontaneous
  Country: US (occurrence: US)
  Receive Date: 20160219
  Receipt Date: 20160219
  Transmission Date: 20160526
  Serious: No
  Sender: FDA-Public Use
  Company Number: US-ALLERGAN-1500921US

PATIENT
  Sex: Female

DRUGS (2)
  1. VITAMINS [Concomitant]
     Active Substance: VITAMINS
     Dosage: UNK
  2. FML [Suspect]
     Active Substance: FLUOROMETHOLONE
     Indication: CORNEAL GRAFT REJECTION
     Dosage: UNK
     Route: 047
     Dates: start: 201408

REACTIONS (2)
  - Stress [Unknown]
  - Panic attack [Unknown]
